FAERS Safety Report 7835367-5 (Version None)
Quarter: 2011Q4

REPORT INFORMATION
  Report Type: 
  Country: None (occurrence: None)
  Receive Date: 20111024
  Receipt Date: 20111019
  Transmission Date: 20120403
  Serious: Yes (Hospitalization)
  Sender: FDA-Public Use
  Company Number: US-SANOFI-AVENTIS-2011SA069661

PATIENT
  Age: 62 Year
  Sex: Female

DRUGS (3)
  1. SOLOSTAR [Suspect]
  2. LANTUS [Suspect]
     Route: 058
  3. LANTUS [Suspect]
     Dosage: DOSE:25 UNIT(S)
     Route: 058

REACTIONS (4)
  - OSTEOMYELITIS [None]
  - EYE HAEMORRHAGE [None]
  - BLOOD GLUCOSE DECREASED [None]
  - VISUAL ACUITY REDUCED [None]
